FAERS Safety Report 24299301 (Version 1)
Quarter: 2024Q3

REPORT INFORMATION
  Report Type: Spontaneous
  Country: US (occurrence: US)
  Receive Date: 20240909
  Receipt Date: 20240909
  Transmission Date: 20241017
  Serious: No
  Sender: ALKERMES
  Company Number: US-ALKERMES INC.-ALK-2024-002238

PATIENT
  Age: 15 Year

DRUGS (1)
  1. ARISTADA [Suspect]
     Active Substance: ARIPIPRAZOLE LAUROXIL
     Indication: Product used for unknown indication
     Dosage: 662 MILLIGRAM, QMO
     Route: 030

REACTIONS (3)
  - Syringe issue [Recovered/Resolved]
  - Off label use [Unknown]
  - Product administered by wrong person [Unknown]

NARRATIVE: CASE EVENT DATE: 20240817
